FAERS Safety Report 16803504 (Version 1)
Quarter: 2019Q3

REPORT INFORMATION
  Report Type: Report from Study
  Country: DE (occurrence: DE)
  Receive Date: 20190913
  Receipt Date: 20190913
  Transmission Date: 20191005
  Serious: Yes (Other)
  Sender: FDA-Public Use
  Company Number: DE-AUROBINDO-AUR-APL-2019-059356

PATIENT
  Age: 65 Year
  Sex: Female

DRUGS (5)
  1. GANCICLOVIR SODIUM. [Suspect]
     Active Substance: GANCICLOVIR SODIUM
     Indication: ANTIVIRAL PROPHYLAXIS
     Dosage: 5 MILLIGRAM/KILOGRAM, TWO TIMES A DAY
     Route: 042
  2. TACROLIMUS. [Suspect]
     Active Substance: TACROLIMUS
     Indication: PROPHYLAXIS AGAINST TRANSPLANT REJECTION
     Dosage: UNK
     Route: 065
  3. MYCOPHENOLATE MOFETIL. [Suspect]
     Active Substance: MYCOPHENOLATE MOFETIL
     Indication: PROPHYLAXIS AGAINST TRANSPLANT REJECTION
     Dosage: UNK
     Route: 065
  4. VALGANCICLOVIR. [Suspect]
     Active Substance: VALGANCICLOVIR
     Dosage: 900 MILLIGRAM, TWO TIMES A DAY
     Route: 065
  5. VALGANCICLOVIR. [Suspect]
     Active Substance: VALGANCICLOVIR
     Indication: ANTIVIRAL PROPHYLAXIS
     Dosage: 900 MILLIGRAM, ONCE A DAY
     Route: 065

REACTIONS (2)
  - Cytomegalovirus gastritis [Recovering/Resolving]
  - Drug resistance [Unknown]
